FAERS Safety Report 9143232 (Version 2)
Quarter: 2013Q1

REPORT INFORMATION
  Report Type: Spontaneous
  Country: JP (occurrence: JP)
  Receive Date: 20130306
  Receipt Date: 20130320
  Transmission Date: 20140127
  Serious: Yes (Hospitalization, Other)
  Sender: FDA-Public Use
  Company Number: PHHY2010JP76472

PATIENT
  Age: 66 Year
  Sex: Female

DRUGS (8)
  1. TASIGNA [Suspect]
     Indication: CHRONIC MYELOID LEUKAEMIA
     Dosage: 400 MG, QD
     Route: 048
     Dates: start: 20091125, end: 20091203
  2. TASIGNA [Suspect]
     Dosage: 400 MG, QD
     Route: 048
     Dates: start: 20091208, end: 20100112
  3. TASIGNA [Suspect]
     Dosage: 400 MG, QD
     Route: 048
     Dates: start: 20100209, end: 20100309
  4. TASIGNA [Suspect]
     Dosage: 400 MG,DAILY
     Route: 048
     Dates: start: 20110112, end: 20120915
  5. TASIGNA [Suspect]
     Dosage: 400 MG, DAILY
     Dates: start: 20121024
  6. SPRYCEL [Suspect]
     Dosage: 20 MG, DAILY
     Route: 048
     Dates: start: 201004, end: 20110111
  7. ZYLORIC [Concomitant]
     Indication: MITRAL VALVE INCOMPETENCE
     Dosage: 100 MG
     Route: 048
  8. FOIPAN [Concomitant]
     Dosage: 100 MG
     Route: 048
     Dates: start: 20091201, end: 20100309

REACTIONS (6)
  - Platelet count decreased [Not Recovered/Not Resolved]
  - Pancytopenia [Unknown]
  - Lipase increased [Recovering/Resolving]
  - Pleural effusion [Not Recovered/Not Resolved]
  - Red blood cell count decreased [Recovering/Resolving]
  - Blood uric acid increased [Not Recovered/Not Resolved]
